FAERS Safety Report 4561210-6 (Version None)
Quarter: 2005Q1

REPORT INFORMATION
  Report Type: 
  Country: None (occurrence: None)
  Receive Date: 20050124
  Receipt Date: 20050112
  Transmission Date: 20050727
  Serious: Yes (Other)
  Sender: FDA-Public Use
  Company Number: 2005-01-1121

PATIENT
  Age: 44 Year
  Sex: Female

DRUGS (2)
  1. GARASONE (GENTAMICIN SULFATE/BETHAMETHASONE SOD PHOSPHOTIC SOLUTION [Suspect]
     Dosage: 3 DROPS TID
  2. MINESTRIN [Concomitant]

REACTIONS (10)
  - AMNESIA [None]
  - ANXIETY [None]
  - COORDINATION ABNORMAL [None]
  - DISTURBANCE IN ATTENTION [None]
  - INSOMNIA [None]
  - NAUSEA [None]
  - TINNITUS [None]
  - VERTIGO [None]
  - VISUAL DISTURBANCE [None]
  - VOMITING [None]
